FAERS Safety Report 5445821-1 (Version None)
Quarter: 2007Q3

REPORT INFORMATION
  Report Type: 
  Country: None (occurrence: None)
  Receive Date: 20070907
  Receipt Date: 20070824
  Transmission Date: 20080115
  Serious: Yes (Hospitalization, Other)
  Sender: FDA-Public Use
  Company Number: US-RB-006887-07

PATIENT
  Age: 55 Year
  Sex: Female

DRUGS (4)
  1. SUBOXONE [Suspect]
     Dosage: REPORTER THINKS PATIENT HAS BEEN ON SUBOXONE FOR 6 MONTHS
     Route: 060
     Dates: start: 20070101
  2. DYAZIDE [Concomitant]
     Indication: HYPERTENSION
     Route: 048
  3. MOTRIN [Concomitant]
     Dosage: 800-1600MG PER DAY PRN
     Route: 048
  4. SEROQUEL [Concomitant]
     Route: 048

REACTIONS (1)
  - BRADYCARDIA [None]
